FAERS Safety Report 8033000-3 (Version None)
Quarter: 2012Q1

REPORT INFORMATION
  Report Type: 
  Country: None (occurrence: None)
  Receive Date: 20120110
  Receipt Date: 20111227
  Transmission Date: 20120608
  Serious: Yes (Other)
  Sender: FDA-Public Use
  Company Number: ES-CELGENEUS-144-50794-11123514

PATIENT
  Age: 46 Year
  Sex: Male

DRUGS (2)
  1. VIDAZA [Suspect]
     Dosage: 37.5 MILLIGRAM/SQ. METER
     Route: 065
     Dates: start: 20110722, end: 20111105
  2. PLATELETS [Concomitant]
     Route: 065
     Dates: start: 20110701, end: 20111101

REACTIONS (3)
  - TOXICITY TO VARIOUS AGENTS [None]
  - NEUTROPENIA [None]
  - DIARRHOEA [None]
